FAERS Safety Report 11718593 (Version 2)
Quarter: 2015Q4

REPORT INFORMATION
  Report Type: Spontaneous
  Country: TW (occurrence: TW)
  Receive Date: 20151110
  Receipt Date: 20151120
  Transmission Date: 20160304
  Serious: Yes (Other)
  Sender: FDA-Public Use
  Company Number: TW-SUN PHARMACEUTICAL INDUSTRIES LTD-2015RR-105755

PATIENT

DRUGS (3)
  1. VALPROATE DE SODIUM [Suspect]
     Active Substance: VALPROATE SODIUM
     Indication: AGGRESSION
  2. QUETIAPINE [Concomitant]
     Active Substance: QUETIAPINE
     Indication: SCHIZOPHRENIA
     Dosage: 800 MG, DAILY (FOR SEVERAL YEARS)
     Route: 065
  3. VALPROATE DE SODIUM [Suspect]
     Active Substance: VALPROATE SODIUM
     Indication: SCHIZOPHRENIA
     Dosage: 2000 MG, DAILY (GRADUALLY TITRATED FROM 500 MG DAILY)
     Route: 065

REACTIONS (2)
  - Impaired healing [Recovered/Resolved]
  - Thrombocytopenia [Recovered/Resolved]
